FAERS Safety Report 22820130 (Version 5)
Quarter: 2023Q4

REPORT INFORMATION
  Report Type: Spontaneous
  Country: US (occurrence: US)
  Receive Date: 20230814
  Receipt Date: 20231107
  Transmission Date: 20240110
  Serious: No
  Sender: FDA-Public Use
  Company Number: US-PFIZER INC-202300272040

PATIENT
  Age: 15 Year
  Sex: Male
  Weight: 47.63 kg

DRUGS (5)
  1. GENOTROPIN [Suspect]
     Active Substance: SOMATROPIN
     Indication: Growth hormone deficiency
     Dosage: (ALTERNATES 2.0MG AND 1.8MG; YESTERDAY WAS 1.8MG)
     Dates: start: 2023
  2. GENOTROPIN [Suspect]
     Active Substance: SOMATROPIN
     Dosage: (ALTERNATES 2.0MG AND 1.8MG; YESTERDAY WAS 1.8MG)
     Dates: start: 2023
  3. GENOTROPIN [Suspect]
     Active Substance: SOMATROPIN
     Dosage: (ALTERNATE 1.8MG AND 2MG DAILY)
     Dates: start: 2023
  4. GENOTROPIN [Suspect]
     Active Substance: SOMATROPIN
     Dosage: (ALTERNATE 1.8MG AND 2MG DAILY)
     Dates: start: 2023
  5. GENOTROPIN [Suspect]
     Active Substance: SOMATROPIN
     Dosage: UNK

REACTIONS (7)
  - Device use error [Unknown]
  - Device breakage [Unknown]
  - Device issue [Unknown]
  - Drug dose omission by device [Unknown]
  - Device use confusion [Unknown]
  - Device leakage [Unknown]
  - Device delivery system issue [Unknown]

NARRATIVE: CASE EVENT DATE: 20230807
